FAERS Safety Report 9666635 (Version 1)
Quarter: 2013Q4

REPORT INFORMATION
  Report Type: Report from Study
  Country: US (occurrence: US)
  Receive Date: 20131104
  Receipt Date: 20131104
  Transmission Date: 20140711
  Serious: Yes (Hospitalization)
  Sender: FDA-Public Use
  Company Number: US-SHIRE-ALL1-2013-07530

PATIENT
  Age: 30 Year
  Sex: Male

DRUGS (8)
  1. IDURSULFASE [Suspect]
     Indication: MUCOPOLYSACCHARIDOSIS II
     Dosage: UNK UNK, UNKNOWN
     Route: 041
     Dates: start: 20100204
  2. LACTULOSE [Concomitant]
     Indication: HYPERAMMONAEMIA
     Dosage: 30 G, AS REQ^D
     Route: 048
     Dates: start: 20120331
  3. FRUSEMIDE                          /00032601/ [Concomitant]
     Indication: CARDIOVASCULAR DISORDER
     Dosage: 240 MG, 2X/DAY:BID
     Route: 048
     Dates: start: 20120325
  4. DOCUSATE [Concomitant]
     Indication: GASTROINTESTINAL DISORDER
     Dosage: 100 MG, 2X/DAY:BID
     Route: 048
     Dates: start: 20120307
  5. LEXAPRO [Concomitant]
     Indication: DEPRESSION
     Dosage: 40 MG, 1X/DAY:QD
     Route: 048
  6. LEXAPRO [Concomitant]
     Indication: ANXIETY
  7. CLARITIN                           /00917501/ [Concomitant]
     Indication: PREMEDICATION
     Dosage: 10 MG, UNKNOWN
     Route: 048
  8. IBUPROFEN [Concomitant]
     Indication: PREMEDICATION
     Dosage: 100 MG, UNKNOWN
     Route: 048

REACTIONS (3)
  - Hepatic encephalopathy [Unknown]
  - Cardiac failure acute [Unknown]
  - Hypokalaemia [Unknown]
